FAERS Safety Report 8459801-5 (Version None)
Quarter: 2012Q2

REPORT INFORMATION
  Report Type: 
  Country: None (occurrence: None)
  Receive Date: 20120622
  Receipt Date: 20120614
  Transmission Date: 20120825
  Serious: Yes (Other)
  Sender: FDA-Public Use
  Company Number: PHHY2012CA053250

PATIENT
  Age: 79 Year
  Sex: Female

DRUGS (3)
  1. PREDNISONE TAB [Concomitant]
  2. ZOLEDRONIC ACID [Suspect]
     Indication: MULTIPLE MYELOMA
     Dosage: UNK
     Route: 042
  3. MELPHALAN HYDROCHLORIDE [Concomitant]

REACTIONS (4)
  - EXPOSED BONE IN JAW [None]
  - INFECTION [None]
  - OSTEONECROSIS OF JAW [None]
  - PAIN IN JAW [None]
